FAERS Safety Report 23946922 (Version 1)
Quarter: 2024Q2

REPORT INFORMATION
  Report Type: Spontaneous
  Country: AR (occurrence: AR)
  Receive Date: 20240606
  Receipt Date: 20240606
  Transmission Date: 20240716
  Serious: Yes (Hospitalization, Other)
  Sender: FDA-Public Use
  Company Number: AR-SANDOZ-SDZ2024AR054996

PATIENT
  Age: 4 Year
  Sex: Male
  Weight: 19.7 kg

DRUGS (1)
  1. OMNITROPE [Suspect]
     Active Substance: SOMATROPIN
     Indication: Prader-Willi syndrome
     Dosage: 0.5 (UNSPECIFIED UNIT), QW
     Route: 058
     Dates: start: 20191217

REACTIONS (2)
  - Epilepsy [Unknown]
  - Respiratory tract infection [Unknown]

NARRATIVE: CASE EVENT DATE: 20230501
